FAERS Safety Report 18368560 (Version 22)
Quarter: 2025Q2

REPORT INFORMATION
  Report Type: Report from Study
  Country: US (occurrence: US)
  Receive Date: 20201010
  Receipt Date: 20250415
  Transmission Date: 20250716
  Serious: Yes (Other)
  Sender: TAKEDA
  Company Number: US-SHIRE-US202032803

PATIENT
  Sex: Male
  Weight: 74 kg

DRUGS (17)
  1. HUMAN IMMUNOGLOBULIN G [Suspect]
     Active Substance: HUMAN IMMUNOGLOBULIN G
     Indication: Immunodeficiency common variable
     Dosage: 50 GRAM, Q4WEEKS
     Dates: start: 20080211
  2. HUMAN IMMUNOGLOBULIN G [Suspect]
     Active Substance: HUMAN IMMUNOGLOBULIN G
     Indication: IgG deficiency
     Dosage: 50 GRAM, Q3WEEKS
     Dates: start: 20200901
  3. HUMAN IMMUNOGLOBULIN G [Suspect]
     Active Substance: HUMAN IMMUNOGLOBULIN G
     Dosage: 50 GRAM, Q3WEEKS
     Dates: start: 20200902
  4. HUMAN IMMUNOGLOBULIN G [Suspect]
     Active Substance: HUMAN IMMUNOGLOBULIN G
     Dosage: 50 GRAM, Q3WEEKS
     Dates: start: 20210816
  5. HUMAN IMMUNOGLOBULIN G [Suspect]
     Active Substance: HUMAN IMMUNOGLOBULIN G
     Dosage: UNK, Q3WEEKS
  6. HUMAN IMMUNOGLOBULIN G [Suspect]
     Active Substance: HUMAN IMMUNOGLOBULIN G
     Dosage: 50 GRAM, Q3WEEKS
  7. EPINEPHRINE [Concomitant]
     Active Substance: EPINEPHRINE
  8. ACETAMINOPHEN [Concomitant]
     Active Substance: ACETAMINOPHEN
  9. IBUPROFEN [Concomitant]
     Active Substance: IBUPROFEN
  10. SODIUM CHLORIDE [Concomitant]
     Active Substance: SODIUM CHLORIDE
  11. ZOFRAN [Concomitant]
     Active Substance: ONDANSETRON HYDROCHLORIDE
  12. BUDESONIDE [Concomitant]
     Active Substance: BUDESONIDE
  13. DIPHENHYDRAMINE [Concomitant]
     Active Substance: DIPHENHYDRAMINE
  14. SOLU-MEDROL [Concomitant]
     Active Substance: METHYLPREDNISOLONE SODIUM SUCCINATE
  15. DIPHENHYDRAMINE HYDROCHLORIDE [Concomitant]
     Active Substance: DIPHENHYDRAMINE HYDROCHLORIDE
  16. ZYRTEC [Concomitant]
     Active Substance: CETIRIZINE HYDROCHLORIDE
  17. DYANAVEL XR [Concomitant]
     Active Substance: AMPHETAMINE

REACTIONS (26)
  - Nephrolithiasis [Unknown]
  - Bursitis [Recovered/Resolved]
  - Ear infection [Unknown]
  - Infusion related reaction [Recovered/Resolved]
  - Escherichia infection [Unknown]
  - Giardiasis [Not Recovered/Not Resolved]
  - Sinus congestion [Not Recovered/Not Resolved]
  - Multiple allergies [Unknown]
  - Device leakage [Unknown]
  - Nasopharyngitis [Recovering/Resolving]
  - Skin laceration [Recovering/Resolving]
  - Road traffic accident [Unknown]
  - Sinusitis [Not Recovered/Not Resolved]
  - Contusion [Recovering/Resolving]
  - Asthenia [Recovered/Resolved]
  - Skin injury [Recovering/Resolving]
  - Nasal congestion [Unknown]
  - Infusion site extravasation [Unknown]
  - Flushing [Recovering/Resolving]
  - Back pain [Unknown]
  - Chills [Recovering/Resolving]
  - Pain in extremity [Unknown]
  - Diarrhoea [Not Recovered/Not Resolved]
  - Urticaria [Not Recovered/Not Resolved]
  - Pain [Recovering/Resolving]
  - Foot fracture [Unknown]
